FAERS Safety Report 19779195 (Version 2)
Quarter: 2023Q1

REPORT INFORMATION
  Report Type: Report from Study
  Country: US (occurrence: US)
  Receive Date: 20210902
  Receipt Date: 20230119
  Transmission Date: 20230418
  Serious: Yes (Other)
  Sender: FDA-Public Use
  Company Number: US-SANOFI-00746801

PATIENT
  Age: 63 Year
  Sex: Male

DRUGS (3)
  1. DUPILUMAB [Suspect]
     Active Substance: DUPILUMAB
     Indication: Asthma
     Dosage: 300 MG, QOW
     Route: 058
     Dates: start: 202107
  2. DUPILUMAB [Suspect]
     Active Substance: DUPILUMAB
     Dosage: 600 MG, 1X
     Route: 058
     Dates: start: 20210908, end: 20210908
  3. DUPILUMAB [Suspect]
     Active Substance: DUPILUMAB
     Dosage: 300 MG, QOW
     Route: 058
     Dates: start: 20210922

REACTIONS (5)
  - Respiratory tract infection [Recovering/Resolving]
  - Pyrexia [Recovering/Resolving]
  - Illness [Recovering/Resolving]
  - Weight increased [Unknown]
  - Asthma [Unknown]

NARRATIVE: CASE EVENT DATE: 20210701
